FAERS Safety Report 24566725 (Version 1)
Quarter: 2024Q4

REPORT INFORMATION
  Report Type: Other
  Country: JP (occurrence: JP)
  Receive Date: 20241030
  Receipt Date: 20241030
  Transmission Date: 20250114
  Serious: Yes (Other)
  Sender: EMD SERONO INC
  Company Number: JP-Merck Healthcare KGaA-2024056962

PATIENT
  Age: 66 Year
  Sex: Male

DRUGS (1)
  1. METGLUCO [Suspect]
     Active Substance: METFORMIN HYDROCHLORIDE
     Indication: Diabetes mellitus
     Route: 048

REACTIONS (5)
  - Renal impairment [Recovering/Resolving]
  - Microalbuminuria [Unknown]
  - Proteinuria [Recovering/Resolving]
  - Blood creatinine increased [Recovered/Resolved]
  - Overdose [Unknown]
